FAERS Safety Report 4840587-8 (Version None)
Quarter: 2005Q4

REPORT INFORMATION
  Report Type: 
  Country: None (occurrence: None)
  Receive Date: 20051129
  Receipt Date: 20051129
  Transmission Date: 20060501
  Serious: Yes (Other)
  Sender: FDA-Public Use
  Company Number: None

PATIENT
  Age: 20 Year
  Sex: Female
  Weight: 97.5234 kg

DRUGS (3)
  1. PERCOCET [Suspect]
     Indication: BACK PAIN
     Dosage: 325MG  1 TAB, 4/DAY AS NE  PO
     Route: 048
     Dates: start: 20051121, end: 20051122
  2. PERCOCET [Suspect]
     Indication: INJURY
     Dosage: 325MG  1 TAB, 4/DAY AS NE  PO
     Route: 048
     Dates: start: 20051121, end: 20051122
  3. PERCOCET [Suspect]
     Indication: MUSCULOSKELETAL DISORDER
     Dosage: 325MG  1 TAB, 4/DAY AS NE  PO
     Route: 048
     Dates: start: 20051121, end: 20051122

REACTIONS (2)
  - PANIC ATTACK [None]
  - TINNITUS [None]
